FAERS Safety Report 25040393 (Version 3)
Quarter: 2025Q2

REPORT INFORMATION
  Report Type: Spontaneous
  Country: CA (occurrence: CA)
  Receive Date: 20250305
  Receipt Date: 20250418
  Transmission Date: 20250716
  Serious: Yes (Life-Threatening, Other)
  Sender: CSL BEHRING
  Company Number: CA-BEH-2025197235

PATIENT
  Age: 78 Year
  Sex: Male

DRUGS (1)
  1. PRIVIGEN [Suspect]
     Active Substance: HUMAN IMMUNOGLOBULIN G
     Indication: Product used for unknown indication
     Route: 042
     Dates: start: 2024, end: 2024

REACTIONS (10)
  - Urticaria [Recovered/Resolved]
  - Anaphylactic reaction [Recovered/Resolved]
  - Allergic oedema [Recovered/Resolved]
  - Angioedema [Recovered/Resolved]
  - Circumoral swelling [Recovered/Resolved]
  - Feeling jittery [Recovered/Resolved]
  - Muscle spasms [Recovered/Resolved]
  - Muscle twitching [Recovered/Resolved]
  - Pruritus [Recovered/Resolved]
  - Tetany [Recovered/Resolved]

NARRATIVE: CASE EVENT DATE: 20240729
